FAERS Safety Report 20241381 (Version 1)
Quarter: 2021Q4

REPORT INFORMATION
  Report Type: Spontaneous
  Country: US (occurrence: US)
  Receive Date: 20211228
  Receipt Date: 20211228
  Transmission Date: 20220303
  Serious: Yes (Death, Other)
  Sender: FDA-Public Use
  Company Number: US-PURDUE-USA-2020-0221625

PATIENT
  Sex: Male

DRUGS (19)
  1. OXYCONTIN [Suspect]
     Active Substance: OXYCODONE HYDROCHLORIDE
     Indication: Pain
     Dosage: UNKNOWN
     Route: 048
  2. OXYCODONE HYDROCHLORIDE [Suspect]
     Active Substance: OXYCODONE HYDROCHLORIDE
     Indication: Pain
     Dosage: UNKNOWN
     Route: 048
  3. OXYCODONE HYDROCHLORIDE [Suspect]
     Active Substance: OXYCODONE HYDROCHLORIDE
     Indication: Pain
     Dosage: UNKNOWN
     Route: 048
  4. OXYCODONE HYDROCHLORIDE [Suspect]
     Active Substance: OXYCODONE HYDROCHLORIDE
     Indication: Pain
     Dosage: UNKNOWN
     Route: 065
  5. BUTRANS [Suspect]
     Active Substance: BUPRENORPHINE
     Indication: Pain
     Dosage: UNKNOWN
     Route: 062
  6. HYSINGLA ER [Suspect]
     Active Substance: HYDROCODONE BITARTRATE
     Indication: Pain
     Dosage: UNKNOWN
     Route: 048
  7. HYDROCODONE BITARTRATE [Suspect]
     Active Substance: HYDROCODONE BITARTRATE
     Indication: Pain
     Dosage: UNKNOWN
     Route: 065
  8. HYDROCODONE BITARTRATE AND ACETAMINOPHEN [Suspect]
     Active Substance: ACETAMINOPHEN\HYDROCODONE BITARTRATE
     Indication: Pain
     Dosage: UNKNOWN
     Route: 048
  9. DILAUDID [Suspect]
     Active Substance: HYDROMORPHONE HYDROCHLORIDE
     Indication: Pain
     Route: 048
  10. HYDROMORPHONE HYDROCHLORIDE [Suspect]
     Active Substance: HYDROMORPHONE HYDROCHLORIDE
     Indication: Pain
     Dosage: UNKNOWN
     Route: 065
  11. HYDROMORPHONE [Suspect]
     Active Substance: HYDROMORPHONE
     Indication: Pain
     Dosage: UNKNOWN
     Route: 048
  12. MS CONTIN [Suspect]
     Active Substance: MORPHINE SULFATE
     Indication: Pain
     Dosage: UNKNOWN
     Route: 048
  13. MORPHINE SULFATE [Suspect]
     Active Substance: MORPHINE SULFATE
     Indication: Pain
     Dosage: UNKNOWN
     Route: 065
  14. MORPHINE SULFATE [Suspect]
     Active Substance: MORPHINE SULFATE
     Indication: Pain
     Dosage: UNKNOWN
     Route: 048
  15. TRAMADOL [Suspect]
     Active Substance: TRAMADOL
     Indication: Pain
     Dosage: UNKNOWN
     Route: 048
  16. OXYCODONE HYDROCHLORIDE [Suspect]
     Active Substance: OXYCODONE HYDROCHLORIDE
     Indication: Pain
     Dosage: UNKNOWN
     Route: 065
  17. OXYCODONE [Suspect]
     Active Substance: OXYCODONE
     Indication: Pain
     Dosage: UNKNOWN
     Route: 065
  18. PALLADONE [Suspect]
     Active Substance: HYDROMORPHONE HYDROCHLORIDE
     Indication: Pain
     Dosage: UNKNOWN
     Route: 065
  19. ACETAMINOPHEN [Suspect]
     Active Substance: ACETAMINOPHEN
     Indication: Pain
     Dosage: UNKNOWN
     Route: 065

REACTIONS (3)
  - Toxicity to various agents [Fatal]
  - Drug dependence [Unknown]
  - Depression [Unknown]
